FAERS Safety Report 18150406 (Version 1)
Quarter: 2020Q3

REPORT INFORMATION
  Report Type: Spontaneous
  Country: PT (occurrence: PT)
  Receive Date: 20200814
  Receipt Date: 20200814
  Transmission Date: 20201103
  Serious: Yes (Other)
  Sender: FDA-Public Use
  Company Number: PT-MYLANLABS-2020M1070778

PATIENT
  Age: 34 Year
  Sex: Male

DRUGS (1)
  1. FLEXIBAN [Suspect]
     Active Substance: CYCLOBENZAPRINE
     Indication: MUSCLE RELAXANT THERAPY
     Dosage: 1 DOSAGE FORM, HS
     Route: 048
     Dates: start: 20200727, end: 20200730

REACTIONS (6)
  - Tachycardia [Recovered/Resolved]
  - Tension [Recovered/Resolved]
  - Dyspepsia [Recovered/Resolved]
  - Arrhythmia [Recovered/Resolved]
  - Blood pressure fluctuation [Unknown]
  - Dizziness [Recovered/Resolved]

NARRATIVE: CASE EVENT DATE: 20200729
